FAERS Safety Report 6804343-3 (Version None)
Quarter: 2010Q2

REPORT INFORMATION
  Report Type: 
  Country: None (occurrence: None)
  Receive Date: 20100628
  Receipt Date: 20070228
  Transmission Date: 20101027
  Serious: No
  Sender: FDA-Public Use
  Company Number: US-PFIZER INC-2007016072

PATIENT
  Weight: 71.67 kg

DRUGS (2)
  1. NIFEDIPINE [Suspect]
  2. ATORVASTATIN CALCIUM [Concomitant]
     Dosage: ONCE DAILY

REACTIONS (1)
  - BLOOD PRESSURE INADEQUATELY CONTROLLED [None]
